FAERS Safety Report 9052973 (Version 1)
Quarter: 2013Q1

REPORT INFORMATION
  Report Type: Spontaneous
  Country: US (occurrence: US)
  Receive Date: 20130208
  Receipt Date: 20130208
  Transmission Date: 20140127
  Serious: No
  Sender: FDA-Public Use
  Company Number: US-009507513-1302USA002584

PATIENT
  Age: 19 Year
  Sex: Male

DRUGS (3)
  1. ASMANEX TWISTHALER [Suspect]
     Indication: ASTHMA
     Dosage: UNK
     Route: 055
     Dates: start: 201205
  2. SINGULAIR [Suspect]
     Dosage: UNK
  3. ALLEGRA [Concomitant]

REACTIONS (1)
  - Urticaria [Unknown]
